FAERS Safety Report 16128506 (Version 1)
Quarter: 2019Q1

REPORT INFORMATION
  Report Type: Spontaneous
  Country: JP (occurrence: JP)
  Receive Date: 20190328
  Receipt Date: 20190328
  Transmission Date: 20190418
  Serious: Yes (Other)
  Sender: FDA-Public Use
  Company Number: JP-PFIZER INC-2019126665

PATIENT
  Age: 87 Year
  Sex: Male
  Weight: 49.3 kg

DRUGS (7)
  1. CEFTRIAXONE SODIUM. [Suspect]
     Active Substance: CEFTRIAXONE SODIUM
     Indication: PNEUMONIA
     Dosage: 0.5 G, DAILY (ON TWO DIALYSIS DAYS)
  2. LEVOFLOXACIN. [Concomitant]
     Active Substance: LEVOFLOXACIN
     Indication: PNEUMONIA
     Dosage: 250 MG, DAILY
  3. ASPIRIN [ACETYLSALICYLIC ACID] [Concomitant]
     Active Substance: ASPIRIN
     Indication: STENOSIS
     Dosage: 100 MG, DAILY
  4. CLOPIDOGREL [Concomitant]
     Active Substance: CLOPIDOGREL BISULFATE
     Indication: THROMBOSIS
     Dosage: 75 MG, DAILY
  5. CLOPIDOGREL [Concomitant]
     Active Substance: CLOPIDOGREL BISULFATE
     Indication: STENOSIS
  6. HEPARIN [Concomitant]
     Active Substance: HEPARIN SODIUM
     Dosage: 2500 IU, UNK (INTRA-CIRCUIT ADMINISTRATION OF UN-FRACTIONATED HEPARIN (2,500 UNITS/SESSION))
  7. ASPIRIN [ACETYLSALICYLIC ACID] [Concomitant]
     Active Substance: ASPIRIN
     Indication: THROMBOSIS

REACTIONS (1)
  - Factor V inhibition [Unknown]
